FAERS Safety Report 7355413-5 (Version None)
Quarter: 2011Q1

REPORT INFORMATION
  Report Type: 
  Country: None (occurrence: None)
  Receive Date: 20110316
  Receipt Date: 20110308
  Transmission Date: 20110831
  Serious: Yes (Death)
  Sender: FDA-Public Use
  Company Number: B0705860A

PATIENT
  Age: 67 Year
  Sex: Female
  Weight: 60 kg

DRUGS (5)
  1. ALLI [Suspect]
     Route: 048
     Dates: start: 20091201, end: 20091201
  2. CALCIUM [Concomitant]
     Indication: OSTEOPOROSIS
     Route: 048
  3. FOSAMAX [Concomitant]
     Indication: OSTEOPOROSIS
     Route: 048
  4. EUTIROX [Concomitant]
     Indication: HYPOTHYROIDISM
     Dosage: 75MG PER DAY
     Route: 048
  5. DAFLON [Concomitant]
     Route: 048

REACTIONS (9)
  - MYOCARDIAL INFARCTION [None]
  - BLOOD THYROID STIMULATING HORMONE ABNORMAL [None]
  - BLOOD PRESSURE INCREASED [None]
  - HYPOAESTHESIA ORAL [None]
  - SUDDEN DEATH [None]
  - MASKED FACIES [None]
  - ABNORMAL BEHAVIOUR [None]
  - HEADACHE [None]
  - CEREBRAL ARTERY EMBOLISM [None]
